FAERS Safety Report 14962951 (Version 1)
Quarter: 2018Q2

REPORT INFORMATION
  Report Type: Spontaneous
  Country: US (occurrence: US)
  Receive Date: 20180510
  Receipt Date: 20180510
  Transmission Date: 20180711
  Serious: Yes (Other)
  Sender: FDA-Public Use
  Company Number: None

PATIENT
  Age: 13 Year
  Sex: Female
  Weight: 40.95 kg

DRUGS (4)
  1. ORAL STEROID [Concomitant]
  2. HERBAL SUPPLEMENT [Concomitant]
     Active Substance: HERBALS
  3. PEPCID [Concomitant]
     Active Substance: FAMOTIDINE
  4. FLOVENT HFA [Suspect]
     Active Substance: FLUTICASONE PROPIONATE
     Indication: DYSPNOEA
     Dosage: ?          QUANTITY:1 SPRAY(S);?
     Route: 055
     Dates: start: 20180507, end: 20180508

REACTIONS (2)
  - Burning sensation [None]
  - Rash [None]

NARRATIVE: CASE EVENT DATE: 20180507
